FAERS Safety Report 23966504 (Version 2)
Quarter: 2024Q2

REPORT INFORMATION
  Report Type: Report from Study
  Country: US (occurrence: US)
  Receive Date: 20240612
  Receipt Date: 20240614
  Transmission Date: 20240716
  Serious: Yes (Congenital Anomaly)
  Sender: FDA-Public Use
  Company Number: US-UCBSA-2024027808

PATIENT
  Age: 0 Year
  Sex: Female
  Weight: 2.806 kg

DRUGS (21)
  1. CERTOLIZUMAB PEGOL [Suspect]
     Active Substance: CERTOLIZUMAB PEGOL
     Indication: Rheumatoid arthritis
     Dosage: 400 MILLIGRAM, MONTHLY (QM)
     Route: 064
     Dates: start: 202006
  2. ASPIRIN [Concomitant]
     Active Substance: ASPIRIN
     Indication: Gestational diabetes
     Dosage: 81 MILLIGRAM, A DAY
     Route: 064
     Dates: start: 20201226
  3. CALCIUM [Concomitant]
     Active Substance: CALCIUM
     Indication: Nutritional supplementation
     Dosage: 2 PILL A DAY
     Route: 064
     Dates: start: 20200606
  4. CORTIZONE 10 [HYDROCORTISONE] [Concomitant]
     Indication: Eczema
     Dosage: 3 TIMES A WEEK, TOPICAL-FACE, SCALP AND/OR SKIN
     Route: 064
     Dates: start: 20201010, end: 20201017
  5. INFLUENZA VIRUS VACCINE [Concomitant]
     Active Substance: INFLUENZA VIRUS VACCINE
     Indication: Product used for unknown indication
     Dosage: 1 SHOT
     Route: 064
     Dates: start: 20200913, end: 20200913
  6. GABAPENTIN [Concomitant]
     Active Substance: GABAPENTIN
     Indication: Rheumatoid arthritis
     Dosage: UNK
     Route: 064
     Dates: start: 20140701, end: 20200515
  7. HUMULIN N [Concomitant]
     Active Substance: INSULIN HUMAN
     Indication: Gestational diabetes
     Dosage: 16 UNITS A DAY INJECTED
     Route: 064
     Dates: start: 20201029, end: 20201201
  8. INSULIN HUMAN;INSULIN NOS [Concomitant]
     Indication: Gestational diabetes
     Dosage: 20 UNITS A DAY INJECTED
     Route: 064
     Dates: start: 20201202, end: 20210101
  9. INSULIN HUMAN;INSULIN NOS [Concomitant]
     Dosage: 22 UNITS A DAY INJECTED
     Route: 064
     Dates: start: 20210102, end: 20210128
  10. INSULIN HUMAN;INSULIN NOS [Concomitant]
     Dosage: 24 UNITS A DAY INJECTED
     Route: 064
     Dates: start: 20210129, end: 20210202
  11. INSULIN HUMAN;INSULIN NOS [Concomitant]
     Dosage: 26 UNITS A DAY INJECTED
     Route: 064
     Dates: start: 20210203
  12. LUVOX [LEVOFLOXACIN HEMIHYDRATE] [Concomitant]
     Indication: Obsessive-compulsive disorder
     Dosage: 300 MILLIGRAM, ONCE DAILY (QD)
     Route: 064
     Dates: start: 20200606
  13. PLAQUENIL [Concomitant]
     Active Substance: HYDROXYCHLOROQUINE SULFATE
     Indication: Rheumatoid arthritis
     Dosage: 1 PILL
     Route: 064
     Dates: start: 20200215, end: 20200630
  14. MINERALS\VITAMINS [Concomitant]
     Active Substance: MINERALS\VITAMINS
     Indication: Product used for unknown indication
     Dosage: 1 DOSAGE FORM (PILL), ONCE DAILY (QD)
     Route: 064
     Dates: start: 20190615
  15. PROGESTERONE [Concomitant]
     Active Substance: PROGESTERONE
     Indication: Infertility
     Dosage: 1 DOSAGE FORM, 2X/2 DAYS
     Route: 064
     Dates: start: 20200622, end: 20200829
  16. PROGESTERONE [Concomitant]
     Active Substance: PROGESTERONE
     Indication: Infertility
     Dosage: 1 DOSAGE FORM, ONCE DAILY (QD)
     Route: 064
     Dates: start: 20200622, end: 20200829
  17. RHOGAM [Concomitant]
     Active Substance: HUMAN RHO(D) IMMUNE GLOBULIN
     Indication: Haemorrhage
     Dosage: 1 SHOT A DAY INJECTED
     Route: 064
     Dates: start: 20200814, end: 20200814
  18. STOOL SOFTENER (DOCUSATE) [Concomitant]
     Active Substance: DOCUSATE
     Indication: Bowel movement irregularity
     Dosage: 1 DOSAGE FORM (PILL), WEEKLY (QW)
     Route: 064
     Dates: start: 20201219
  19. TYLENOL [Concomitant]
     Active Substance: ACETAMINOPHEN
     Indication: Rheumatoid arthritis
     Dosage: 200 MILLIGRAM, 2X/WEEK
     Route: 064
     Dates: start: 20200606, end: 20201111
  20. DOXYLAMINE SUCCINATE [Concomitant]
     Active Substance: DOXYLAMINE SUCCINATE
     Indication: Sleep disorder
     Dosage: 1 DOSAGE FORM (PILL), 2X/WEEK
     Route: 064
     Dates: start: 20200606, end: 20210101
  21. DOXYLAMINE SUCCINATE [Concomitant]
     Active Substance: DOXYLAMINE SUCCINATE
     Dosage: 1 DOSAGE FORM (PILL), ONCE DAILY (QD)
     Route: 064
     Dates: start: 20210102

REACTIONS (3)
  - Strabismus congenital [Unknown]
  - Maternal exposure before pregnancy [Unknown]
  - Maternal exposure during pregnancy [Unknown]

NARRATIVE: CASE EVENT DATE: 20200601
